FAERS Safety Report 13296988 (Version 1)
Quarter: 2017Q1

REPORT INFORMATION
  Report Type: Spontaneous
  Country: US (occurrence: US)
  Receive Date: 20170306
  Receipt Date: 20170306
  Transmission Date: 20170428
  Serious: No
  Sender: FDA-Public Use
  Company Number: US-ASTRAZENECA-2017SE21305

PATIENT
  Sex: Male
  Weight: 102.1 kg

DRUGS (2)
  1. PULMICORT RESPULES [Suspect]
     Active Substance: BUDESONIDE
     Indication: ASTHMA
     Dosage: TWICE A DAY
     Route: 045
  2. PULMICORT RESPULES [Suspect]
     Active Substance: BUDESONIDE
     Indication: SINUSITIS
     Dosage: TWICE A DAY
     Route: 045

REACTIONS (3)
  - Dyspnoea [Unknown]
  - Product use issue [Unknown]
  - Intentional product misuse [Unknown]
